FAERS Safety Report 5652105-5 (Version None)
Quarter: 2008Q1

REPORT INFORMATION
  Report Type: 
  Country: None (occurrence: None)
  Receive Date: 20080131
  Receipt Date: 20071113
  Transmission Date: 20080703
  Serious: No
  Sender: FDA-Public Use
  Company Number: US200711000131

PATIENT
  Age: 72 Year
  Sex: Male
  Weight: 166.9 kg

DRUGS (12)
  1. BYETTA [Suspect]
     Indication: TYPE 2 DIABETES MELLITUS
     Dosage: 5 UG, DAILY (1/D), SUBCUTANEOUS ; 10 UG, DAILY (1/D), SUBCUTANEOUS ; 5 UG, DAILY (1/D), SUBCUTANEOUS
     Route: 058
     Dates: start: 20070701, end: 20070101
  2. BYETTA [Suspect]
     Indication: TYPE 2 DIABETES MELLITUS
     Dosage: 5 UG, DAILY (1/D), SUBCUTANEOUS ; 10 UG, DAILY (1/D), SUBCUTANEOUS ; 5 UG, DAILY (1/D), SUBCUTANEOUS
     Route: 058
     Dates: start: 20070601, end: 20070701
  3. BYETTA [Suspect]
     Indication: TYPE 2 DIABETES MELLITUS
     Dosage: 5 UG, DAILY (1/D), SUBCUTANEOUS ; 10 UG, DAILY (1/D), SUBCUTANEOUS ; 5 UG, DAILY (1/D), SUBCUTANEOUS
     Route: 058
     Dates: start: 20070101
  4. GLIPIZIDE [Concomitant]
  5. KLOR-CON [Concomitant]
  6. SINVASTATINA MEPHA (SIMVASTATIN) [Concomitant]
  7. WARFARIN SODIUM [Concomitant]
  8. METOPROLOL SUCCINATE [Concomitant]
  9. DILTAHEXAL (DILTIAZEM HYDROCHLORIDE) [Concomitant]
  10. OMEPRAZOLE MAGNESIUM (OMEPRAZOLE MAGNESIUM) [Concomitant]
  11. HYDROCHLOROTHIAZIDE [Concomitant]
  12. AVAPRO [Concomitant]

REACTIONS (3)
  - BACK PAIN [None]
  - NAUSEA [None]
  - URINARY TRACT INFECTION [None]
